FAERS Safety Report 7456762-2 (Version None)
Quarter: 2011Q2

REPORT INFORMATION
  Report Type: 
  Country: None (occurrence: None)
  Receive Date: 20110504
  Receipt Date: 20110430
  Transmission Date: 20111010
  Serious: Yes (Hospitalization)
  Sender: FDA-Public Use
  Company Number: US-BRISTOL-MYERS SQUIBB COMPANY-15653769

PATIENT
  Age: 60 Year
  Sex: Male

DRUGS (1)
  1. IPILIMUMAB [Suspect]
     Indication: MALIGNANT MELANOMA
     Dosage: 16FEB11 327MG 9MAR11 330MG NO OF COURSE=1
     Route: 042
     Dates: start: 20110216, end: 20110309

REACTIONS (6)
  - NEOPLASM MALIGNANT [None]
  - DEHYDRATION [None]
  - CONSTIPATION [None]
  - VOMITING [None]
  - NAUSEA [None]
  - PAIN [None]
